FAERS Safety Report 8975058 (Version 1)
Quarter: 2012Q4

REPORT INFORMATION
  Report Type: 
  Country: US (occurrence: US)
  Receive Date: 20121219
  Receipt Date: 20121219
  Transmission Date: 20130627
  Serious: Yes (Other)
  Sender: FDA-Public Use
  Company Number: PHEH2012US024859

PATIENT
  Age: 52 Year
  Sex: Female

DRUGS (1)
  1. GILENYA [Suspect]
     Indication: MULTIPLE SCLEROSIS RELAPSE
     Dosage: 0.5 mg, QD
     Route: 048
     Dates: start: 20121212

REACTIONS (2)
  - Electrocardiogram QT prolonged [Recovering/Resolving]
  - Chest pain [Recovering/Resolving]
